FAERS Safety Report 9107221 (Version 1)
Quarter: 2013Q1

REPORT INFORMATION
  Report Type: Spontaneous
  Country: US (occurrence: US)
  Receive Date: 20130221
  Receipt Date: 20130221
  Transmission Date: 20140127
  Serious: Yes (Death)
  Sender: FDA-Public Use
  Company Number: US-RB-041055-12

PATIENT
  Age: 37 Year
  Sex: Male

DRUGS (3)
  1. SUBOXONE FILM [Suspect]
     Indication: DRUG DEPENDENCE
     Dosage: UNKNOWN DOSING DETAILS
     Route: 060
     Dates: end: 201207
  2. SUBOXONE TABLET [Suspect]
     Indication: DRUG DEPENDENCE
     Dosage: UNKNOWN DOSING DETAILS
     Route: 060
     Dates: end: 201207
  3. SUBUTEX [Suspect]
     Indication: DRUG DEPENDENCE
     Dosage: UNKNOWN DOSAGE DETAILS
     Route: 060
     Dates: end: 2011

REACTIONS (6)
  - Substance abuse [Recovered/Resolved]
  - Substance abuse [Recovered/Resolved]
  - Sinusitis [Recovered/Resolved]
  - Intentional drug misuse [Recovered/Resolved]
  - Drug withdrawal syndrome [Recovered/Resolved]
  - Death [Fatal]
